FAERS Safety Report 4279553-2 (Version None)
Quarter: 2004Q1

REPORT INFORMATION
  Report Type: 
  Country: None (occurrence: None)
  Receive Date: 20040123
  Receipt Date: 20040114
  Transmission Date: 20041129
  Serious: Yes (Other)
  Sender: FDA-Public Use
  Company Number: 2004002972

PATIENT
  Sex: Female

DRUGS (4)
  1. ZITHROMAX [Suspect]
     Indication: PHARYNGITIS
     Dosage: 500 MG , ORAL
     Route: 048
     Dates: start: 20040113, end: 20040113
  2. FOSFOMYCIN CALCIUM (FOSFOMYCIN CALCIUM) [Concomitant]
  3. PRANOPROFEN (PRANOPROFEN) [Concomitant]
  4. LANSOPRAZOLE [Concomitant]

REACTIONS (5)
  - ANAPHYLACTIC SHOCK [None]
  - ERYTHEMA [None]
  - LOSS OF CONSCIOUSNESS [None]
  - PRURITUS [None]
  - PULSE ABSENT [None]
